FAERS Safety Report 7356122-9 (Version None)
Quarter: 2011Q1

REPORT INFORMATION
  Report Type: 
  Country: None (occurrence: None)
  Receive Date: 20110316
  Receipt Date: 20110304
  Transmission Date: 20110831
  Serious: Yes (Other)
  Sender: FDA-Public Use
  Company Number: PT-JNJFOC-20110303309

PATIENT
  Age: 17 Month
  Sex: Male

DRUGS (2)
  1. TICE BCG [Suspect]
     Indication: IMMUNISATION
  2. REMICADE [Suspect]
     Indication: DRUG EXPOSURE DURING PREGNANCY
     Route: 064

REACTIONS (2)
  - LYMPHADENOPATHY [None]
  - TUBERCULIN TEST POSITIVE [None]
